FAERS Safety Report 7704292-2 (Version None)
Quarter: 2011Q3

REPORT INFORMATION
  Report Type: 
  Country: None (occurrence: None)
  Receive Date: 20110823
  Receipt Date: 20110811
  Transmission Date: 20111222
  Serious: Yes (Hospitalization)
  Sender: FDA-Public Use
  Company Number: PHHY2010FI81209

PATIENT
  Sex: Male
  Weight: 72 kg

DRUGS (2)
  1. LESCOL [Suspect]
     Indication: BLOOD CHOLESTEROL DECREASED
     Dosage: 80 MG, UNK
     Route: 048
     Dates: start: 20050101, end: 20101026
  2. OMEGA [Concomitant]
     Route: 048
     Dates: end: 20101026

REACTIONS (2)
  - CHRONIC LYMPHOCYTIC LEUKAEMIA [None]
  - SYSTEMIC LUPUS ERYTHEMATOSUS [None]
